FAERS Safety Report 9933293 (Version 2)
Quarter: 2014Q1

REPORT INFORMATION
  Report Type: Report from Study
  Country: US (occurrence: US)
  Receive Date: 20140228
  Receipt Date: 20140228
  Transmission Date: 20141002
  Serious: No
  Sender: FDA-Public Use
  Company Number: US-MYLANLABS-2013S1003712

PATIENT
  Age: 25 Year
  Sex: Female

DRUGS (3)
  1. AMNESTEEM CAPSULES [Suspect]
     Indication: ACNE CYSTIC
     Route: 048
     Dates: start: 201211, end: 201302
  2. NORTRIPTYLINE [Concomitant]
  3. XANAX [Concomitant]
     Indication: ANXIETY
     Dosage: 1 BY MOUTH AS NEEDED, STARTED YEARS AGO
     Route: 048

REACTIONS (4)
  - Acne [Not Recovered/Not Resolved]
  - Depression [Not Recovered/Not Resolved]
  - Arthralgia [Not Recovered/Not Resolved]
  - Dry skin [Recovering/Resolving]
